FAERS Safety Report 7278341-2 (Version None)
Quarter: 2011Q1

REPORT INFORMATION
  Report Type: 
  Country: None (occurrence: None)
  Receive Date: 20110207
  Receipt Date: 20110202
  Transmission Date: 20110831
  Serious: Yes (Life-Threatening)
  Sender: FDA-Public Use
  Company Number: FR-ASTRAZENECA-2011SE06068

PATIENT
  Age: 53 Year
  Sex: Female

DRUGS (5)
  1. SUCCINYLCHOLINE CHLORIDE [Suspect]
     Indication: INDUCTION OF ANAESTHESIA
     Dosage: ONCE/SINGLE ADMINISTRATION
     Route: 042
     Dates: start: 20110110, end: 20110110
  2. METFORMIN HCL [Concomitant]
     Route: 048
     Dates: end: 20110109
  3. DIPRIVAN [Suspect]
     Indication: INDUCTION OF ANAESTHESIA
     Dosage: ONCE/SINGLE ADMINISTRATION
     Route: 042
     Dates: start: 20110110, end: 20110110
  4. SUFENTANYL MERCK [Suspect]
     Indication: INDUCTION OF ANAESTHESIA
     Route: 042
     Dates: start: 20110110, end: 20110110
  5. HYPNOMIDATE [Suspect]
     Indication: INDUCTION OF ANAESTHESIA
     Route: 042
     Dates: start: 20110110, end: 20110110

REACTIONS (4)
  - BRONCHOSPASM [None]
  - ANAPHYLACTOID SHOCK [None]
  - RASH [None]
  - CIRCULATORY COLLAPSE [None]
